FAERS Safety Report 7770901-5 (Version None)
Quarter: 2011Q3

REPORT INFORMATION
  Report Type: 
  Country: None (occurrence: None)
  Receive Date: 20110922
  Receipt Date: 20100803
  Transmission Date: 20111222
  Serious: Yes (Other)
  Sender: FDA-Public Use
  Company Number: US-ASTRAZENECA-2007UW25128

PATIENT
  Age: 18 Year
  Sex: Female
  Weight: 131.5 kg

DRUGS (33)
  1. SEROQUEL [Suspect]
     Indication: DEPRESSION
     Dosage: 100-1000 MG
     Route: 048
     Dates: start: 20001023, end: 20040621
  2. SEROQUEL [Suspect]
     Dosage: 100MG TO 300MG AND 2500 MG
     Route: 048
     Dates: start: 20010227, end: 20040621
  3. RISPERDAL [Concomitant]
     Indication: ANXIETY
     Dosage: MAX DOSAGE
     Dates: start: 20000101
  4. ABILIFY [Concomitant]
  5. VERAPAMIL EXTENDED-RELEASE [Concomitant]
     Indication: HYPERTENSION
     Route: 048
     Dates: start: 20001121
  6. BYETTA [Concomitant]
     Indication: WEIGHT CONTROL
  7. RISPERDAL [Concomitant]
     Indication: BIPOLAR DISORDER
     Dosage: MAX DOSAGE
     Dates: start: 20000101
  8. PROZAC [Concomitant]
     Route: 048
     Dates: start: 20000630
  9. HALDOL [Concomitant]
     Dates: start: 20090101
  10. SEROQUEL [Suspect]
     Dosage: 100MG TO 300MG AND 2500 MG
     Route: 048
     Dates: start: 20010227, end: 20040621
  11. SEROQUEL [Suspect]
     Dosage: 100MG TO 300MG AND 2500 MG
     Route: 048
     Dates: start: 20010227, end: 20040621
  12. ALBUTEROL INHALER [Concomitant]
     Dosage: 17 GM, 2 PUFFS QID
     Dates: start: 20040120
  13. INDERAL [Concomitant]
     Dates: start: 20020830
  14. KLONOPIN [Concomitant]
     Dates: start: 20021003
  15. ZANTAC [Concomitant]
     Indication: GASTROOESOPHAGEAL REFLUX DISEASE
     Dosage: P.R.N
     Dates: start: 20000630
  16. ORTHO TRI-CYCLEN [Concomitant]
     Dosage: 1 EVERY DAY
     Route: 048
     Dates: start: 20000630
  17. IMITREX [Concomitant]
     Indication: HEADACHE
     Dosage: ONE TABLET AT ONSET, REPEAT IN 2 HRS IF NEEDED
     Dates: start: 20010112
  18. SEROQUEL [Suspect]
     Indication: SCHIZOPHRENIA
     Dosage: 100-1000 MG
     Route: 048
     Dates: start: 20001023, end: 20040621
  19. ZYPREXA [Concomitant]
     Indication: BIPOLAR DISORDER
     Dates: start: 19970101, end: 19990101
  20. ADVAIR DISKUS 100/50 [Concomitant]
     Dates: start: 20040319
  21. TRILEPTAL [Concomitant]
     Dates: start: 20040319
  22. THORAZINE [Concomitant]
  23. SEROQUEL [Suspect]
     Indication: BIPOLAR DISORDER
     Dosage: 100-1000 MG
     Route: 048
     Dates: start: 20001023, end: 20040621
  24. ZESTRIL [Concomitant]
     Indication: HYPERTENSION
     Route: 048
     Dates: start: 20020204
  25. IBUPROFEN [Concomitant]
     Indication: HEADACHE
     Dosage: P.R.N
     Dates: start: 20000630
  26. PROTONIX [Concomitant]
     Dates: start: 20021003
  27. GEODON [Concomitant]
     Dates: start: 20090101
  28. SEROQUEL [Suspect]
     Indication: ANXIETY
     Dosage: 100-1000 MG
     Route: 048
     Dates: start: 20001023, end: 20040621
  29. SEROQUEL [Suspect]
     Dosage: 100MG TO 300MG AND 2500 MG
     Route: 048
     Dates: start: 20010227, end: 20040621
  30. ZYPREXA [Concomitant]
     Indication: ANXIETY
     Dates: start: 19970101, end: 19990101
  31. SINGULAIR [Concomitant]
     Dates: start: 20040319
  32. PERIACTIN [Concomitant]
     Dates: start: 20010112
  33. TOPAMAX [Concomitant]
     Dates: start: 20030210

REACTIONS (8)
  - OBESITY [None]
  - DIABETIC KETOACIDOSIS [None]
  - GLUCOSE TOLERANCE IMPAIRED [None]
  - TYPE 2 DIABETES MELLITUS [None]
  - IMPAIRED GASTRIC EMPTYING [None]
  - NERVOUS SYSTEM DISORDER [None]
  - BLOOD TRIGLYCERIDES INCREASED [None]
  - DRUG INEFFECTIVE [None]
